FAERS Safety Report 18777872 (Version 2)
Quarter: 2021Q1

REPORT INFORMATION
  Report Type: Spontaneous
  Country: US (occurrence: US)
  Receive Date: 20210122
  Receipt Date: 20210122
  Transmission Date: 20210419
  Serious: No
  Sender: FDA-Public Use
  Company Number: 2020SGN03753

PATIENT
  Sex: Female

DRUGS (1)
  1. TUKYSA [Suspect]
     Active Substance: TUCATINIB
     Indication: BREAST CANCER FEMALE
     Dosage: 150 MG
     Route: 065

REACTIONS (8)
  - Hospice care [Unknown]
  - Product use issue [Unknown]
  - Constipation [Not Recovered/Not Resolved]
  - Muscle spasms [Unknown]
  - Blood pressure decreased [Unknown]
  - Diarrhoea [Recovered/Resolved]
  - Fatigue [Unknown]
  - Decreased appetite [Unknown]
